FAERS Safety Report 14871164 (Version 2)
Quarter: 2019Q1

REPORT INFORMATION
  Report Type: Spontaneous
  Country: CN (occurrence: CN)
  Receive Date: 20180509
  Receipt Date: 20190306
  Transmission Date: 20190417
  Serious: No
  Sender: FDA-Public Use
  Company Number: CN-OTSUKA-2018_011658

PATIENT

DRUGS (2)
  1. TOLVAPTAN TABLETS [Suspect]
     Active Substance: TOLVAPTAN
     Indication: HEPATIC CIRRHOSIS
     Dosage: 30 MG, QD
     Route: 048
  2. TOLVAPTAN TABLETS [Suspect]
     Active Substance: TOLVAPTAN
     Indication: ASCITES

REACTIONS (1)
  - No adverse event [Unknown]
